FAERS Safety Report 8244491-7 (Version None)
Quarter: 2012Q1

REPORT INFORMATION
  Report Type: 
  Country: None (occurrence: None)
  Receive Date: 20120329
  Receipt Date: 20120326
  Transmission Date: 20120608
  Serious: Yes (Death)
  Sender: FDA-Public Use
  Company Number: PHHY2012EC026463

PATIENT
  Sex: Female

DRUGS (4)
  1. DIOVAN HCT [Suspect]
     Indication: HYPERTENSION
     Dosage: 1 DF (80MG VALS/12.5MG HYDROCHLOROTHIAZIDE), DAILY
     Route: 048
     Dates: start: 20070101, end: 20110923
  2. BISOPROLOL FUMARATE [Concomitant]
     Dosage: 1 DF, DAILY
  3. EXELON [Suspect]
     Indication: DEMENTIA ALZHEIMER'S TYPE
     Dosage: 4.6 MG/24HS
     Route: 062
     Dates: start: 20070101
  4. CARVEDILOL [Concomitant]
     Dosage: 1 DF, DAILY

REACTIONS (6)
  - PALLOR [None]
  - VOMITING [None]
  - ALTERED STATE OF CONSCIOUSNESS [None]
  - CEREBRAL INFARCTION [None]
  - MYOCARDIAL INFARCTION [None]
  - HYPERTENSION [None]
